FAERS Safety Report 21922423 (Version 2)
Quarter: 2023Q1

REPORT INFORMATION
  Report Type: Spontaneous
  Country: US (occurrence: US)
  Receive Date: 20230128
  Receipt Date: 20230201
  Transmission Date: 20230418
  Serious: Yes (Death, Hospitalization, Other)
  Sender: FDA-Public Use
  Company Number: US-002147023-NVSC2023US018834

PATIENT
  Sex: Female
  Weight: 102 kg

DRUGS (2)
  1. LEQVIO [Suspect]
     Active Substance: INCLISIRAN SODIUM
     Indication: Primary hypercholesterolaemia
     Dosage: UNK, 284 SUB Q
     Route: 065
  2. LEQVIO [Suspect]
     Active Substance: INCLISIRAN SODIUM
     Dosage: UNK, QD
     Route: 058
     Dates: start: 20221129

REACTIONS (7)
  - Death [Fatal]
  - Chest pain [Unknown]
  - Acute myocardial infarction [Unknown]
  - Blood lactic acid increased [Unknown]
  - International normalised ratio decreased [Unknown]
  - Brain natriuretic peptide increased [Unknown]
  - Dyspnoea [Unknown]
